FAERS Safety Report 10866142 (Version 1)
Quarter: 2015Q1

REPORT INFORMATION
  Report Type: Spontaneous
  Country: US (occurrence: None)
  Receive Date: 20150219
  Receipt Date: 20150219
  Transmission Date: 20150721
  Serious: Yes (Hospitalization, Other)
  Sender: FDA-Public Use
  Company Number: 001870582A

PATIENT
  Age: 46 Year
  Sex: Female

DRUGS (3)
  1. PROACTIV PLUS PORE TARGETING TREATMENT [Suspect]
     Active Substance: BENZOYL PEROXIDE
     Indication: ACNE
     Dosage: DERMAL QD
     Dates: start: 20150116, end: 20150120
  2. PROACTIV PLUS COMPLEXION PERFECTING HYDRATOR [Suspect]
     Active Substance: SALICYLIC ACID
     Indication: ACNE
     Dosage: DERMAL QD
     Dates: start: 20150116, end: 20150120
  3. PROACTIVPLUS SKIN SMOOTHING EXFOLIATOR [Suspect]
     Active Substance: BENZOYL PEROXIDE
     Indication: ACNE
     Dosage: DERMAL QD
     Dates: start: 20150116, end: 20150120

REACTIONS (3)
  - Hypersensitivity [None]
  - Swelling face [None]
  - Malaise [None]

NARRATIVE: CASE EVENT DATE: 20150120
